FAERS Safety Report 9882618 (Version 1)
Quarter: 2014Q1

REPORT INFORMATION
  Report Type: Spontaneous
  Country: FR (occurrence: FR)
  Receive Date: 20140207
  Receipt Date: 20140207
  Transmission Date: 20141002
  Serious: Yes (Hospitalization, Other)
  Sender: FDA-Public Use
  Company Number: FR-CELGENEUS-056-21660-14014687

PATIENT
  Age: 41 Year
  Sex: Male

DRUGS (4)
  1. ABRAXANE [Suspect]
     Indication: PANCREATIC CARCINOMA
     Route: 041
     Dates: start: 20131204
  2. ABRAXANE [Suspect]
     Indication: METASTASES TO LIVER
  3. GEMCITABINE [Concomitant]
     Indication: PANCREATIC CARCINOMA
     Route: 065
     Dates: start: 20131204
  4. GEMCITABINE [Concomitant]
     Indication: METASTASES TO LIVER
     Route: 065
     Dates: start: 20130925, end: 20131120

REACTIONS (2)
  - Pancytopenia [Unknown]
  - Jaundice [Unknown]
